FAERS Safety Report 13835266 (Version 6)
Quarter: 2019Q3

REPORT INFORMATION
  Report Type: Report from Study
  Country: None (occurrence: NL)
  Receive Date: 20170804
  Receipt Date: 20190923
  Transmission Date: 20191004
  Serious: Yes (Other)
  Sender: FDA-Public Use
  Company Number: NL-ABBVIE-17K-114-2060766-00

PATIENT
  Age: 76 Year
  Sex: Male
  Weight: 60 kg

DRUGS (6)
  1. MADOPAR [Concomitant]
     Active Substance: BENSERAZIDE HYDROCHLORIDE\LEVODOPA
     Indication: PARKINSON^S DISEASE
     Dosage: ONCE IN THE MORNING
     Route: 048
  2. MACROGOL [Concomitant]
     Active Substance: POLYETHYLENE GLYCOLS
     Indication: ABNORMAL FAECES
  3. NEUPRO [Concomitant]
     Active Substance: ROTIGOTINE
     Indication: PRODUCT USED FOR UNKNOWN INDICATION
  4. DUODOPA [Suspect]
     Active Substance: CARBIDOPA\LEVODOPA
     Dosage: MD 10.5, CD 3.5, ED 3.0
     Route: 050
  5. DUODOPA [Suspect]
     Active Substance: CARBIDOPA\LEVODOPA
     Indication: PARKINSON^S DISEASE
     Dosage: MD 10.5 CD 3.7 ED 2.5
     Route: 050
     Dates: start: 20160607
  6. DUODOPA [Suspect]
     Active Substance: CARBIDOPA\LEVODOPA
     Dosage: CD: 3.5; AFTER 4 PM: 3.8, ED: 2.5
     Route: 050

REACTIONS (28)
  - Bradyphrenia [Not Recovered/Not Resolved]
  - General physical health deterioration [Not Recovered/Not Resolved]
  - Abnormal dreams [Recovered/Resolved]
  - Hyperhidrosis [Not Recovered/Not Resolved]
  - Extra dose administered [Unknown]
  - Memory impairment [Not Recovered/Not Resolved]
  - Syncope [Not Recovered/Not Resolved]
  - Dysgeusia [Not Recovered/Not Resolved]
  - Stress [Not Recovered/Not Resolved]
  - Depressed mood [Not Recovered/Not Resolved]
  - Speech disorder [Not Recovered/Not Resolved]
  - Parkinson^s disease [Not Recovered/Not Resolved]
  - Feeling abnormal [Not Recovered/Not Resolved]
  - On and off phenomenon [Not Recovered/Not Resolved]
  - Increased appetite [Unknown]
  - Gait disturbance [Not Recovered/Not Resolved]
  - Diplopia [Not Recovered/Not Resolved]
  - Faeces hard [Not Recovered/Not Resolved]
  - Depression [Not Recovered/Not Resolved]
  - Loss of consciousness [Recovered/Resolved]
  - Freezing phenomenon [Not Recovered/Not Resolved]
  - Weight decreased [Recovered/Resolved]
  - Muscle spasms [Not Recovered/Not Resolved]
  - Decreased appetite [Recovered/Resolved]
  - Loss of consciousness [Unknown]
  - Dystonia [Not Recovered/Not Resolved]
  - Weight decreased [Unknown]
  - Hallucination [Not Recovered/Not Resolved]

NARRATIVE: CASE EVENT DATE: 201707
